FAERS Safety Report 4906509-6 (Version None)
Quarter: 2006Q1

REPORT INFORMATION
  Report Type: 
  Country: None (occurrence: None)
  Receive Date: 20060209
  Receipt Date: 20040225
  Transmission Date: 20060701
  Serious: Yes (Disabling, Other)
  Sender: FDA-Public Use
  Company Number: FR-MERCK-0402FRA00086

PATIENT
  Age: 79 Year
  Sex: Female

DRUGS (6)
  1. FOSAMAX [Suspect]
     Indication: OSTEOPOROSIS
     Route: 048
     Dates: start: 20020101, end: 20030601
  2. FOSAMAX [Suspect]
     Route: 048
     Dates: start: 20030601
  3. CIPROFIBRATE [Concomitant]
     Indication: DYSLIPIDAEMIA
     Route: 048
  4. NICERGOLINE [Concomitant]
     Route: 048
  5. ACETAMINOPHEN [Concomitant]
     Route: 048
  6. [THERAPY UNSPECIFIED] [Concomitant]
     Indication: CATARACT OPERATION
     Route: 047

REACTIONS (4)
  - ASTHENIA [None]
  - CATARACT [None]
  - CATARACT OPERATION [None]
  - TOOTH FRACTURE [None]
